FAERS Safety Report 12068406 (Version 1)
Quarter: 2016Q1

REPORT INFORMATION
  Report Type: Spontaneous
  Country: US (occurrence: US)
  Receive Date: 20160211
  Receipt Date: 20160211
  Transmission Date: 20160526
  Serious: No
  Sender: FDA-Public Use
  Company Number: US-SMITH AND NEPHEW, INC-2015SMT00627

PATIENT
  Age: 48 Year
  Sex: Male
  Weight: 106.58 kg

DRUGS (4)
  1. GLIPIZIDE. [Concomitant]
     Active Substance: GLIPIZIDE
     Dosage: 50 MG, 1X/DAY
     Dates: start: 2014
  2. REGRANEX [Suspect]
     Active Substance: BECAPLERMIN
     Indication: DIABETIC FOOT
     Dosage: UNK UNK, 1X/DAY
     Route: 061
     Dates: start: 201510, end: 201510
  3. METFORMIN [Concomitant]
     Active Substance: METFORMIN HYDROCHLORIDE
     Dosage: 1000 MG, 2X/DAY
     Dates: start: 2014
  4. VANCOMYCIN [Concomitant]
     Active Substance: VANCOMYCIN
     Indication: OSTEOMYELITIS
     Dosage: 2 G, 3X/DAY
     Route: 042
     Dates: start: 201509

REACTIONS (4)
  - Musculoskeletal pain [Unknown]
  - Wound complication [Unknown]
  - Application site haemorrhage [Recovering/Resolving]
  - Scab [Unknown]

NARRATIVE: CASE EVENT DATE: 201510
